FAERS Safety Report 8986084 (Version 2)
Quarter: 2013Q1

REPORT INFORMATION
  Report Type: Spontaneous
  Country: DK (occurrence: None)
  Receive Date: 20121214
  Receipt Date: 20130129
  Transmission Date: 20140127
  Serious: Yes (Hospitalization)
  Sender: FDA-Public Use
  Company Number: 2012MA014081

PATIENT
  Age: 39 Year
  Sex: Female

DRUGS (2)
  1. DIAZEPAM TABLETS USP, 10 MG (PUREPAC) (DIAZEPAM) [Suspect]
     Indication: PRODUCT USED FOR UNKNOWN INDICATION
     Dates: start: 20121006
  2. FEVERALL [Suspect]
     Indication: PRODUCT USED FOR UNKNOWN INDICATION
     Route: 048
     Dates: start: 20121012

REACTIONS (6)
  - Acidosis [None]
  - Stupor [None]
  - Somnolence [None]
  - Epistaxis [None]
  - Unresponsive to stimuli [None]
  - Overdose [None]
